FAERS Safety Report 7600172-1 (Version None)
Quarter: 2011Q3

REPORT INFORMATION
  Report Type: 
  Country: None (occurrence: None)
  Receive Date: 20110706
  Receipt Date: 20110706
  Transmission Date: 20111222
  Serious: Yes (Death)
  Sender: FDA-Public Use
  Company Number: None

PATIENT
  Age: 73 Year
  Sex: Male
  Weight: 85 kg

DRUGS (1)
  1. AGGRASTAT [Suspect]
     Indication: MYOCARDIAL INFARCTION

REACTIONS (4)
  - PULMONARY ALVEOLAR HAEMORRHAGE [None]
  - PLATELET AGGREGATION INHIBITION [None]
  - THROMBOCYTOPENIA [None]
  - ACUTE RESPIRATORY DISTRESS SYNDROME [None]
